FAERS Safety Report 9031078 (Version 1)
Quarter: 2013Q1

REPORT INFORMATION
  Report Type: Report from Study
  Country: DE (occurrence: DE)
  Receive Date: 20130123
  Receipt Date: 20130123
  Transmission Date: 20140127
  Serious: Yes (Hospitalization)
  Sender: FDA-Public Use
  Company Number: DE-TEVA-381984USA

PATIENT
  Sex: Male
  Weight: 57 kg

DRUGS (3)
  1. TREANDA [Suspect]
     Route: 042
  2. RITUXIMAB [Suspect]
     Indication: MANTLE CELL LYMPHOMA
     Route: 042
     Dates: start: 20110128
  3. RITUXIMAB [Suspect]
     Route: 042
     Dates: start: 20111128

REACTIONS (2)
  - Cholelithiasis [Recovered/Resolved]
  - Diarrhoea [Unknown]
